FAERS Safety Report 10575342 (Version 1)
Quarter: 2014Q4

REPORT INFORMATION
  Report Type: Spontaneous
  Country: GB (occurrence: None)
  Receive Date: 20141107
  Receipt Date: 20141107
  Transmission Date: 20150529
  Serious: Yes (Disabling, Other)
  Sender: FDA-Public Use
  Company Number: GB-DEXPHARM-20140790

PATIENT
  Age: 34 Year
  Sex: Male

DRUGS (2)
  1. SERTRALINE [Concomitant]
     Active Substance: SERTRALINE HYDROCHLORIDE
  2. OMEPRAZOLE (OMEPRAZOLE) [Suspect]
     Active Substance: OMEPRAZOLE
     Indication: HIATUS HERNIA
     Dosage: 1 DF DOSAGE FORM, 2 IN 1 DAYS, 16.0 DF DOSAGE FORM, ORAL
     Route: 048
     Dates: start: 20140919, end: 20141018

REACTIONS (11)
  - Myalgia [None]
  - Muscle twitching [None]
  - Confusional state [None]
  - Arthralgia [None]
  - Dizziness [None]
  - Flatulence [None]
  - Feeling abnormal [None]
  - Sleep disorder [None]
  - Joint crepitation [None]
  - Insomnia [None]
  - Fatigue [None]

NARRATIVE: CASE EVENT DATE: 20140927
